FAERS Safety Report 9745084 (Version 1)
Quarter: 2013Q4

REPORT INFORMATION
  Report Type: Spontaneous
  Country: US (occurrence: US)
  Receive Date: 20131211
  Receipt Date: 20131211
  Transmission Date: 20140711
  Serious: Yes (Hospitalization)
  Sender: FDA-Public Use
  Company Number: US-JNJFOC-20131201245

PATIENT
  Age: 71 Year
  Sex: Female
  Weight: 52.62 kg

DRUGS (10)
  1. REMICADE [Suspect]
     Indication: RHEUMATOID ARTHRITIS
     Dosage: STARTED MANY YEARS AGO POSSIBLY IN 1998 OR 1999
     Route: 042
  2. SUPER B COMPLEX [Concomitant]
     Route: 048
  3. CITRACAL CALCIUM CITRATE + D [Concomitant]
     Dosage: 315 MG CAPLETS??STARTED A MAXIMUM YEARS AGO
     Route: 048
  4. FOLIC ACID [Concomitant]
     Dosage: STARTED A COUPLE OF YEARS AGO
     Route: 048
  5. METOPROLOL [Concomitant]
     Route: 048
     Dates: start: 201208
  6. METHOTREXATE [Concomitant]
     Indication: POLYMYOSITIS
     Dosage: 2.5 MG TABLET??STARTED A COUPLE OF YEARS AGO
     Route: 048
  7. VALACYCLOVIR [Concomitant]
     Indication: HERPES VIRUS INFECTION
     Dosage: STARTED A FEW YEARS AGO
     Route: 048
  8. WELCHOL [Concomitant]
     Dosage: 625MG/TABLET??STARTED A WHILE AGO
     Route: 048
  9. ZETIA [Concomitant]
     Dosage: STARTED A WHILE AGO
     Route: 048
  10. VITAMINS NOS [Concomitant]
     Route: 048

REACTIONS (4)
  - Transient ischaemic attack [Recovered/Resolved]
  - Fall [Recovered/Resolved]
  - Head injury [Recovered/Resolved]
  - Loss of consciousness [Recovered/Resolved]
